FAERS Safety Report 7990265-1 (Version None)
Quarter: 2011Q4

REPORT INFORMATION
  Report Type: 
  Country: None (occurrence: None)
  Receive Date: 20111219
  Receipt Date: 20110217
  Transmission Date: 20120403
  Serious: No
  Sender: FDA-Public Use
  Company Number: US-ASTRAZENECA-2011SE09219

PATIENT
  Age: 84 Year
  Sex: Female
  Weight: 54.4 kg

DRUGS (4)
  1. LEVOTHYROXINE SODIUM [Concomitant]
  2. ATENOLOL [Concomitant]
     Indication: HYPERTENSION
  3. VITAMIN TAB [Concomitant]
  4. CRESTOR [Suspect]
     Indication: HYPERCHOLESTEROLAEMIA
     Route: 048
     Dates: start: 20100101

REACTIONS (1)
  - BLOOD URINE PRESENT [None]
